FAERS Safety Report 16383496 (Version 1)
Quarter: 2019Q2

REPORT INFORMATION
  Report Type: Spontaneous
  Country: US (occurrence: US)
  Receive Date: 20190603
  Receipt Date: 20190603
  Transmission Date: 20190711
  Serious: No
  Sender: FDA-Public Use
  Company Number: US-PFIZER INC-2019231823

PATIENT
  Age: 71 Year
  Sex: Female
  Weight: 54.38 kg

DRUGS (1)
  1. LYRICA [Suspect]
     Active Substance: PREGABALIN
     Indication: NEURALGIA
     Dosage: UNK, 3X/DAY (UNKNOWN DOSE THREE TIMES A DAY BY MOUTH)
     Route: 048
     Dates: start: 201905

REACTIONS (1)
  - Gait disturbance [Unknown]
